FAERS Safety Report 20895861 (Version 2)
Quarter: 2022Q4

REPORT INFORMATION
  Report Type: Spontaneous
  Country: US (occurrence: US)
  Receive Date: 20220531
  Receipt Date: 20221018
  Transmission Date: 20230112
  Serious: No
  Sender: FDA-Public Use
  Company Number: US-drreddys-SPO/USA/22/0150181

PATIENT
  Sex: Male

DRUGS (1)
  1. BUPRENORPHINE\NALOXONE [Suspect]
     Active Substance: BUPRENORPHINE\NALOXONE
     Indication: Drug withdrawal maintenance therapy
     Dosage: TWICE DAILY (BUPRENORPHINE 8 MG /NALOXONE 2 MG).

REACTIONS (12)
  - Anxiety [Unknown]
  - Nervousness [Unknown]
  - Depressed mood [Unknown]
  - Nausea [Unknown]
  - Feeling of body temperature change [Unknown]
  - Hyperhidrosis [Unknown]
  - Cold sweat [Unknown]
  - Nasopharyngitis [Unknown]
  - Dyspnoea [Unknown]
  - Flushing [Unknown]
  - Fear [Unknown]
  - Product quality issue [Unknown]
